FAERS Safety Report 10279989 (Version 1)
Quarter: 2014Q3

REPORT INFORMATION
  Report Type: Spontaneous
  Country: IT (occurrence: None)
  Receive Date: 20140701
  Receipt Date: 20140701
  Transmission Date: 20150326
  Serious: Yes (Disabling, Other)
  Sender: FDA-Public Use
  Company Number: 2014JUB00020

PATIENT
  Age: 53 Year
  Sex: Female

DRUGS (2)
  1. CETIRIZINE [Suspect]
     Active Substance: CETIRIZINE HYDROCHLORIDE
     Indication: URTICARIA
  2. TETRABENAZINE [Suspect]
     Active Substance: TETRABENAZINE
     Indication: URTICARIA

REACTIONS (5)
  - Protrusion tongue [None]
  - Dystonia [None]
  - Dysphagia [None]
  - Parkinsonism [None]
  - Weight decreased [None]
